FAERS Safety Report 9321980 (Version 2)
Quarter: 2013Q2

REPORT INFORMATION
  Report Type: Spontaneous
  Country: GB (occurrence: GB)
  Receive Date: 20130531
  Receipt Date: 20130531
  Transmission Date: 20140414
  Serious: Yes (Life-Threatening)
  Sender: FDA-Public Use
  Company Number: GB-JNJFOC-20050106305

PATIENT
  Sex: Female
  Weight: 57 kg

DRUGS (3)
  1. IBUPROFEN [Suspect]
     Indication: BACK PAIN
     Dosage: 200 MILLIGRAM, BID DAILY DOSE
     Route: 048
     Dates: start: 20031203, end: 20031203
  2. CETIRIZINE [Concomitant]
     Indication: RHINITIS ALLERGIC
     Dates: end: 200309
  3. PAROXETINE [Concomitant]
     Indication: DEPRESSION
     Dosage: 10 MILLIGRAM, QD DAILY DOSE QTY: 10 MG
     Route: 048

REACTIONS (8)
  - Pruritus [Recovered/Resolved]
  - Erythema [Recovered/Resolved]
  - Lip swelling [Recovered/Resolved]
  - Hypotension [Recovered/Resolved]
  - Swollen tongue [Recovered/Resolved]
  - Rash [Recovered/Resolved]
  - Swelling [Recovered/Resolved]
  - Swelling face [None]
